FAERS Safety Report 6862696-4 (Version None)
Quarter: 2010Q3

REPORT INFORMATION
  Report Type: 
  Country: None (occurrence: None)
  Receive Date: 20100721
  Receipt Date: 20100706
  Transmission Date: 20110219
  Serious: Yes (Hospitalization)
  Sender: FDA-Public Use
  Company Number: DE-ROCHE-696338

PATIENT
  Sex: Female
  Weight: 83 kg

DRUGS (3)
  1. TRASTUZUMAB [Suspect]
     Indication: BREAST CANCER
     Dosage: LAST DOSE: 1 APRIL 2010
     Route: 065
     Dates: start: 20100312
  2. MYOCET [Suspect]
     Indication: BREAST CANCER
     Dosage: LAST DOSE: 1 APRIL 2010
     Route: 042
     Dates: start: 20100312
  3. CYCLOPHOSPHAMIDE [Suspect]
     Indication: BREAST CANCER
     Dosage: LAST DOSE: 1 APRIL 2010
     Route: 065
     Dates: start: 20100312

REACTIONS (1)
  - DEEP VEIN THROMBOSIS [None]
